FAERS Safety Report 6525018-4 (Version None)
Quarter: 2010Q1

REPORT INFORMATION
  Report Type: 
  Country: None (occurrence: None)
  Receive Date: 20100104
  Receipt Date: 20091222
  Transmission Date: 20100710
  Serious: Yes (Life-Threatening)
  Sender: FDA-Public Use
  Company Number: FR-PFIZER INC-2009312947

PATIENT
  Age: 40 Year
  Sex: Female

DRUGS (5)
  1. FARMORUBICINE [Suspect]
     Dosage: 200 MG, EVERY 3 DAYS
     Route: 042
     Dates: start: 20070601, end: 20070701
  2. FLUOROURACIL [Suspect]
     Dosage: 1000 MG, EVERY 3 WEEKS
     Route: 042
     Dates: start: 20070601, end: 20070701
  3. ENDOXAN [Suspect]
     Dosage: 1000 MG, EVERY 3 WEEKS
     Route: 042
     Dates: start: 20090601, end: 20090701
  4. TAXOTERE [Suspect]
     Dosage: 200 MG, EVERY 3 WEEKS
     Route: 042
     Dates: start: 20070801, end: 20070901
  5. NOLVADEX [Suspect]
     Dosage: 20 MG, UNK
     Route: 048
     Dates: start: 20080314

REACTIONS (1)
  - ACUTE MYELOID LEUKAEMIA [None]
